FAERS Safety Report 19294958 (Version 1)
Quarter: 2021Q2

REPORT INFORMATION
  Report Type: Spontaneous
  Country: FR (occurrence: FR)
  Receive Date: 20210524
  Receipt Date: 20210524
  Transmission Date: 20210717
  Serious: Yes (Hospitalization)
  Sender: FDA-Public Use
  Company Number: FR-MYLANLABS-2021M1029529

PATIENT
  Age: 87 Year
  Sex: Female
  Weight: 37 kg

DRUGS (18)
  1. PARACETAMOL [Concomitant]
     Active Substance: ACETAMINOPHEN
     Dosage: 3 DOSAGE FORM, QD
     Route: 048
     Dates: start: 20190408
  2. POTASSIUM                          /00031402/ [Concomitant]
     Active Substance: POTASSIUM
     Dosage: 1 DOSAGE FORM, QD
     Route: 054
     Dates: start: 20190408
  3. TARDYFERON [Concomitant]
     Active Substance: FERROUS SULFATE
     Dosage: 80 MILLIGRAM
     Route: 048
  4. LATANOPROST. [Concomitant]
     Active Substance: LATANOPROST
     Dosage: 0.01 PERCENT, QD
     Route: 047
     Dates: start: 20190408
  5. PANTOPRAZOLE [Suspect]
     Active Substance: PANTOPRAZOLE
     Indication: PRODUCT USED FOR UNKNOWN INDICATION
     Dosage: 20 MILLIGRAM, QD
     Route: 048
     Dates: start: 2015, end: 20200917
  6. OXAZEPAM. [Concomitant]
     Active Substance: OXAZEPAM
     Dosage: 10 MILLIGRAM, QD
     Route: 048
     Dates: start: 20190820
  7. TIMOLOL. [Concomitant]
     Active Substance: TIMOLOL
     Dosage: 0.5 PERCENT, QD
     Route: 047
     Dates: start: 20190408
  8. AUGMENTIN [Concomitant]
     Active Substance: AMOXICILLIN\CLAVULANATE POTASSIUM
     Dosage: 3000 MILLIGRAM, QD
     Route: 048
     Dates: start: 20200916, end: 20200925
  9. LACTULOSE. [Concomitant]
     Active Substance: LACTULOSE
     Dosage: 4 DOSAGE FORM, QD
     Route: 048
     Dates: start: 20190408
  10. AUGMENTIN [Concomitant]
     Active Substance: AMOXICILLIN\CLAVULANATE POTASSIUM
     Dosage: 3000 MILLIGRAM
     Route: 048
     Dates: start: 20201005, end: 20201016
  11. AUGMENTIN [Concomitant]
     Active Substance: AMOXICILLIN\CLAVULANATE POTASSIUM
     Dosage: 1500 MILLIGRAM, QD
     Route: 042
     Dates: start: 20200825, end: 20200905
  12. PHOSPHATE                          /01053101/ [Concomitant]
     Active Substance: SODIUM PHOSPHATE\SODIUM PHOSPHATE, MONOBASIC
     Dosage: 1 DOSAGE FORM, QD
     Route: 048
     Dates: start: 20190408
  13. ACIDE FOLIQUE [Concomitant]
     Active Substance: FOLIC ACID
     Dosage: 5 MILLIGRAM
     Route: 048
  14. COLECALCIFEROL [Concomitant]
     Active Substance: CHOLECALCIFEROL
     Dosage: 1 DOSAGE FORM, BIMONTHLY
     Route: 048
     Dates: start: 20200506
  15. TRAMADOL. [Concomitant]
     Active Substance: TRAMADOL
     Dosage: 24 GTT DROPS, QD
     Route: 048
     Dates: start: 20190408
  16. XYLENE [Concomitant]
     Active Substance: XYLENE
     Dosage: 10 PERCENT, QD
     Route: 001
     Dates: start: 20200701, end: 20200711
  17. CLOZAPINE. [Concomitant]
     Active Substance: CLOZAPINE
     Dosage: 25 MILLIGRAM
     Route: 048
     Dates: start: 2012
  18. SINEMET [Concomitant]
     Active Substance: CARBIDOPA\LEVODOPA
     Dosage: 4 DOSAGE FORM, QD
     Route: 048
     Dates: start: 20190408

REACTIONS (2)
  - Condition aggravated [Recovering/Resolving]
  - Lung disorder [Recovering/Resolving]

NARRATIVE: CASE EVENT DATE: 2017
